FAERS Safety Report 8892777 (Version 1)
Quarter: 2012Q4

REPORT INFORMATION
  Report Type: 
  Country: US (occurrence: US)
  Receive Date: 20121107
  Receipt Date: 20121107
  Transmission Date: 20130627
  Serious: No
  Sender: FDA-Public Use
  Company Number: US-AMGEN-USASP2011061138

PATIENT
  Age: 39 Year
  Sex: Male

DRUGS (4)
  1. ENBREL [Suspect]
     Indication: ANKYLOSING SPONDYLITIS
  2. HUMIRA [Concomitant]
     Dosage: UNK
     Dates: start: 20101210
  3. DICLOFENAC [Concomitant]
     Dosage: 50 mg, UNK
  4. SULFASALAZIN [Concomitant]
     Dosage: 500 mg, UNK

REACTIONS (1)
  - Therapeutic response decreased [Unknown]
